FAERS Safety Report 15347146 (Version 1)
Quarter: 2018Q3

REPORT INFORMATION
  Report Type: Spontaneous
  Country: US (occurrence: US)
  Receive Date: 20180828
  Receipt Date: 20180828
  Transmission Date: 20181010
  Serious: Yes (Life-Threatening)
  Sender: FDA-Public Use
  Company Number: None

PATIENT
  Age: 62 Year
  Sex: Male

DRUGS (12)
  1. AMLODIPINE/BENAZAPRIL [Concomitant]
  2. NOVOLOG [Concomitant]
     Active Substance: INSULIN ASPART
  3. PRAVASTATIN. [Concomitant]
     Active Substance: PRAVASTATIN
  4. TARCEVA [Suspect]
     Active Substance: ERLOTINIB HYDROCHLORIDE
     Indication: LUNG NEOPLASM MALIGNANT
     Route: 048
     Dates: start: 20170605, end: 201808
  5. OXYCONTIN [Concomitant]
     Active Substance: OXYCODONE HYDROCHLORIDE
  6. OXYCODONE/APAP [Concomitant]
     Active Substance: ACETAMINOPHEN\OXYCODONE HYDROCHLORIDE
  7. CLONIDINE. [Concomitant]
     Active Substance: CLONIDINE
  8. ALLOPURINOL. [Concomitant]
     Active Substance: ALLOPURINOL
  9. ELIQUIS [Concomitant]
     Active Substance: APIXABAN
  10. METFORMIN [Concomitant]
     Active Substance: METFORMIN HYDROCHLORIDE
  11. LANTUS [Concomitant]
     Active Substance: INSULIN GLARGINE
  12. BUPROPION. [Concomitant]
     Active Substance: BUPROPION

REACTIONS (1)
  - Metastases to central nervous system [None]
